FAERS Safety Report 11398189 (Version 2)
Quarter: 2015Q4

REPORT INFORMATION
  Report Type: Spontaneous
  Country: US (occurrence: US)
  Receive Date: 20150820
  Receipt Date: 20151003
  Transmission Date: 20160304
  Serious: No
  Sender: FDA-Public Use
  Company Number: US-009507513-1508USA006333

PATIENT

DRUGS (1)
  1. RAGWITEK [Suspect]
     Active Substance: AMBROSIA ARTEMISIIFOLIA POLLEN
     Indication: SEASONAL ALLERGY
     Dosage: 12 AMB/ONCE A DAY
     Route: 060

REACTIONS (4)
  - Pruritus [Unknown]
  - Urticaria [Unknown]
  - Oedema mouth [Unknown]
  - Dyspnoea [Unknown]
